FAERS Safety Report 10287297 (Version 1)
Quarter: 2014Q3

REPORT INFORMATION
  Report Type: Report from Study
  Country: AU (occurrence: None)
  Receive Date: 20140707
  Receipt Date: 20140707
  Transmission Date: 20150326
  Serious: Yes (Other)
  Sender: FDA-Public Use
  Company Number: 2014-19878

PATIENT
  Age: 73 Year
  Sex: Male

DRUGS (1)
  1. EYLEA [Suspect]
     Active Substance: AFLIBERCEPT
     Indication: AGE-RELATED MACULAR DEGENERATION
     Dosage: EVERY 6 WEEKS
     Route: 031
     Dates: start: 201402

REACTIONS (3)
  - Macular hole [None]
  - Inappropriate schedule of drug administration [None]
  - Visual impairment [None]
